FAERS Safety Report 9393922 (Version 1)
Quarter: 2013Q3

REPORT INFORMATION
  Report Type: Spontaneous
  Country: FR (occurrence: FR)
  Receive Date: 20130710
  Receipt Date: 20130710
  Transmission Date: 20140515
  Serious: Yes (Hospitalization)
  Sender: FDA-Public Use
  Company Number: FR-BAXTER-2013BAX025563

PATIENT
  Age: 34 Year
  Sex: Female

DRUGS (4)
  1. SEVOFLURANE BAXTER 1 ML/ML, LIQUIDE POUR INHALATION PAR VAPEUR [Suspect]
     Indication: GENERAL ANAESTHESIA
     Route: 042
     Dates: start: 20070529, end: 20070529
  2. DIPRIVAN [Suspect]
     Indication: GENERAL ANAESTHESIA
     Route: 042
     Dates: start: 20070529, end: 20070529
  3. MIDAZOLAM [Suspect]
     Indication: GENERAL ANAESTHESIA
     Route: 042
     Dates: start: 20070529, end: 20070529
  4. SUFENTANIL [Suspect]
     Indication: GENERAL ANAESTHESIA
     Route: 042
     Dates: start: 20070529, end: 20070529

REACTIONS (2)
  - Myocarditis [Recovered/Resolved]
  - Presyncope [Unknown]
